FAERS Safety Report 9834462 (Version 1)
Quarter: 2014Q1

REPORT INFORMATION
  Report Type: Spontaneous
  Country: FR (occurrence: FR)
  Receive Date: 20140122
  Receipt Date: 20140122
  Transmission Date: 20141002
  Serious: Yes (Other)
  Sender: FDA-Public Use
  Company Number: FR-ASTRAZENECA-2014SE03790

PATIENT
  Age: 42 Year
  Sex: Male

DRUGS (1)
  1. INEXIUM [Suspect]
     Indication: GASTROOESOPHAGEAL REFLUX DISEASE
     Route: 048
     Dates: start: 2002, end: 20130910

REACTIONS (3)
  - Subacute cutaneous lupus erythematosus [Recovered/Resolved]
  - Migraine with aura [Recovering/Resolving]
  - Therapy cessation [Unknown]
